FAERS Safety Report 7014284-7 (Version None)
Quarter: 2010Q3

REPORT INFORMATION
  Report Type: 
  Country: None (occurrence: None)
  Receive Date: 20100924
  Receipt Date: 20100924
  Transmission Date: 20110219
  Serious: Yes (Hospitalization)
  Sender: FDA-Public Use
  Company Number: None

PATIENT
  Age: 61 Year
  Sex: Female
  Weight: 45.6727 kg

DRUGS (10)
  1. DECITABINE 0.2MG/KG [Suspect]
     Indication: MYELODYSPLASTIC SYNDROME
     Dosage: 20.2MG 2X/WK SUB-Q INJ.
     Dates: start: 20100809, end: 20100831
  2. DECITABINE 0.2MG/KG [Suspect]
     Indication: MYELODYSPLASTIC SYNDROME
     Dosage: 20.2MG 2X/WK SUB-Q INJ.
     Dates: start: 20100913
  3. DECITABINE 0.2MG/KG [Suspect]
     Indication: MYELODYSPLASTIC SYNDROME
     Dosage: 20.2MG 2X/WK SUB-Q INJ.
     Dates: start: 20100914
  4. CIPRO [Concomitant]
  5. XANAX [Concomitant]
  6. NORVASC [Concomitant]
  7. ZOLPIDEM [Concomitant]
  8. ZYRTEC [Concomitant]
  9. PRILOSEC [Concomitant]
  10. ULTRAM [Concomitant]

REACTIONS (5)
  - FEBRILE NEUTROPENIA [None]
  - GINGIVAL PAIN [None]
  - HEADACHE [None]
  - PROCEDURAL PAIN [None]
  - WHITE BLOOD CELL COUNT DECREASED [None]
